FAERS Safety Report 17808104 (Version 1)
Quarter: 2020Q2

REPORT INFORMATION
  Report Type: Spontaneous
  Country: US (occurrence: US)
  Receive Date: 20200520
  Receipt Date: 20200520
  Transmission Date: 20200714
  Serious: Yes (Hospitalization, Other)
  Sender: FDA-Public Use
  Company Number: US-JUBILANT CADISTA PHARMACEUTICALS-2020JUB00173

PATIENT
  Age: 61 Year
  Sex: Female

DRUGS (1)
  1. PREDNISONE. [Suspect]
     Active Substance: PREDNISONE
     Indication: GLOMERULONEPHRITIS MINIMAL LESION
     Dosage: (^HIGH-DOSE^)
     Route: 065

REACTIONS (3)
  - Hepatic cirrhosis [Unknown]
  - Hepatitis B reactivation [Recovering/Resolving]
  - Hepatic function abnormal [Recovering/Resolving]
